FAERS Safety Report 7712337-9 (Version None)
Quarter: 2011Q3

REPORT INFORMATION
  Report Type: 
  Country: None (occurrence: None)
  Receive Date: 20110826
  Receipt Date: 20110817
  Transmission Date: 20111222
  Serious: Yes (Hospitalization)
  Sender: FDA-Public Use
  Company Number: US-ROCHE-764277

PATIENT
  Sex: Female

DRUGS (5)
  1. RIBASPHERE [Suspect]
     Route: 048
     Dates: start: 20110307
  2. PEGINTERFERON ALFA-2A [Suspect]
     Route: 058
  3. RIBASPHERE [Suspect]
     Dosage: FORM: PILLS. DIVIDED DOSES.
     Route: 048
     Dates: start: 20110401
  4. PEGINTERFERON ALFA-2A [Suspect]
     Indication: HEPATITIS C
     Dosage: FORM: PRE-FILLED SYRINGE
     Route: 058
     Dates: start: 20110121, end: 20110201
  5. RIBASPHERE [Suspect]
     Indication: HEPATITIS C
     Dosage: DIVIDED DOSES
     Route: 048
     Dates: start: 20110121, end: 20110201

REACTIONS (16)
  - NAUSEA [None]
  - DRUG DOSE OMISSION [None]
  - HAEMATEMESIS [None]
  - INSOMNIA [None]
  - ULCER HAEMORRHAGE [None]
  - NECK PAIN [None]
  - INTERVERTEBRAL DISC PROTRUSION [None]
  - MUSCULOSKELETAL DISORDER [None]
  - DYSPNOEA [None]
  - DRY SKIN [None]
  - WEIGHT DECREASED [None]
  - SWOLLEN TONGUE [None]
  - ALOPECIA [None]
  - DECREASED APPETITE [None]
  - ADVERSE DRUG REACTION [None]
  - FATIGUE [None]
